FAERS Safety Report 12503081 (Version 3)
Quarter: 2016Q4

REPORT INFORMATION
  Report Type: Spontaneous
  Country: IT (occurrence: IT)
  Receive Date: 20160628
  Receipt Date: 20161011
  Transmission Date: 20170207
  Serious: Yes (Other)
  Sender: FDA-Public Use
  Company Number: IT-ROCHE-1784132

PATIENT
  Age: 62 Year
  Sex: Male
  Weight: 105 kg

DRUGS (5)
  1. FLEBOCORTID [Concomitant]
     Active Substance: HYDROCORTISONE SODIUM SUCCINATE
  2. PARACETAMOL [Concomitant]
     Active Substance: ACETAMINOPHEN
  3. GAZYVARO [Suspect]
     Active Substance: OBINUTUZUMAB
     Route: 041
     Dates: start: 201606, end: 201606
  4. GAZYVARO [Suspect]
     Active Substance: OBINUTUZUMAB
     Route: 041
     Dates: start: 201606, end: 201606
  5. GAZYVARO [Suspect]
     Active Substance: OBINUTUZUMAB
     Indication: CHRONIC LYMPHOCYTIC LEUKAEMIA
     Route: 042
     Dates: start: 20160530, end: 20160531

REACTIONS (3)
  - Acute respiratory failure [Unknown]
  - Chills [Recovered/Resolved]
  - Dyspnoea [Recovered/Resolved]

NARRATIVE: CASE EVENT DATE: 20160530
